FAERS Safety Report 7149418-7 (Version None)
Quarter: 2010Q4

REPORT INFORMATION
  Report Type: 
  Country: None (occurrence: None)
  Receive Date: 20101209
  Receipt Date: 20101112
  Transmission Date: 20110411
  Serious: No
  Sender: FDA-Public Use
  Company Number: US-KINGPHARMUSA00001-K201001405

PATIENT
  Age: 42 Year
  Sex: Male
  Weight: 71.655 kg

DRUGS (9)
  1. EMBEDA [Suspect]
     Indication: PAIN
     Dosage: 20 MG, QD
     Route: 048
     Dates: start: 20101110, end: 20101113
  2. EMBEDA [Suspect]
     Dosage: 30 MG, QD
     Route: 048
     Dates: start: 20101114
  3. EPZICOM [Concomitant]
     Indication: HIV ANTIBODY POSITIVE
     Dosage: UNK
  4. EPZICOM [Concomitant]
     Indication: ACQUIRED IMMUNODEFICIENCY SYNDROME
  5. RALTEGRAVIR [Concomitant]
     Indication: HIV ANTIBODY POSITIVE
     Dosage: UNK
  6. RALTEGRAVIR [Concomitant]
     Indication: ACQUIRED IMMUNODEFICIENCY SYNDROME
  7. LIPITOR [Concomitant]
     Indication: MYOCARDIAL INFARCTION
     Dosage: UNK
  8. PLAVIX [Concomitant]
     Indication: MYOCARDIAL INFARCTION
     Dosage: UNK
  9. PERCOCET [Concomitant]
     Indication: PAIN
     Dosage: 10/325 MG, MAXIMUM OF 4 QD PRN
     Route: 048

REACTIONS (1)
  - DRUG INEFFECTIVE [None]
